FAERS Safety Report 10372769 (Version 1)
Quarter: 2014Q3

REPORT INFORMATION
  Report Type: Spontaneous
  Country: US (occurrence: US)
  Receive Date: 20140808
  Receipt Date: 20140808
  Transmission Date: 20150326
  Serious: Yes (Death, Hospitalization, Other)
  Sender: FDA-Public Use
  Company Number: US-B.I. PHARMACEUTICALS,INC./RIDGEFIELD-2014-BI-35883BP

PATIENT
  Age: 83 Year
  Sex: Male

DRUGS (4)
  1. KEPPRA [Concomitant]
     Active Substance: LEVETIRACETAM
     Indication: CONVULSION
     Route: 065
  2. PRADAXA [Suspect]
     Active Substance: DABIGATRAN ETEXILATE MESYLATE
     Indication: PRODUCT USED FOR UNKNOWN INDICATION
     Route: 065
     Dates: end: 20140403
  3. HYDROCHLOROTHIAZIDE. [Concomitant]
     Active Substance: HYDROCHLOROTHIAZIDE
     Route: 065
  4. MVI [Concomitant]
     Active Substance: VITAMINS
     Route: 065

REACTIONS (7)
  - Sepsis [Unknown]
  - Urinary tract infection [Unknown]
  - Anaemia [Unknown]
  - Contusion [Unknown]
  - Upper gastrointestinal haemorrhage [Fatal]
  - Coagulopathy [Unknown]
  - Respiratory failure [Unknown]

NARRATIVE: CASE EVENT DATE: 20140402
